FAERS Safety Report 8455888-4 (Version None)
Quarter: 2012Q2

REPORT INFORMATION
  Report Type: 
  Country: None (occurrence: None)
  Receive Date: 20120614
  Receipt Date: 20120611
  Transmission Date: 20120825
  Serious: Yes (Hospitalization)
  Sender: FDA-Public Use
  Company Number: 2012SP053027

PATIENT
  Age: 42 Year
  Sex: Female
  Weight: 104.3273 kg

DRUGS (1)
  1. NUVARING [Suspect]
     Indication: DYSMENORRHOEA
     Dates: start: 20090101, end: 20091109

REACTIONS (11)
  - LEFT VENTRICULAR HYPERTROPHY [None]
  - DEEP VEIN THROMBOSIS [None]
  - PULMONARY EMBOLISM [None]
  - HYPERTENSION [None]
  - TACHYCARDIA [None]
  - CARDIAC DISORDER [None]
  - DILATATION VENTRICULAR [None]
  - PULMONARY INFARCTION [None]
  - GLYCOSYLATED HAEMOGLOBIN INCREASED [None]
  - PALPITATIONS [None]
  - TRICUSPID VALVE INCOMPETENCE [None]
